FAERS Safety Report 10202455 (Version 1)
Quarter: 2014Q2

REPORT INFORMATION
  Report Type: Spontaneous
  Country: GB (occurrence: GB)
  Receive Date: 20140528
  Receipt Date: 20140528
  Transmission Date: 20141212
  Serious: Yes (Other)
  Sender: FDA-Public Use
  Company Number: GB-PFIZER INC-2014141982

PATIENT
  Age: 27 Year
  Sex: Female

DRUGS (1)
  1. FLUCONAZOLE [Suspect]
     Indication: CANDIDA INFECTION
     Dosage: 1 DF, UNK
     Route: 048
     Dates: start: 20140503, end: 20140503

REACTIONS (3)
  - Swelling face [Not Recovered/Not Resolved]
  - Skin tightness [Not Recovered/Not Resolved]
  - Blister [Not Recovered/Not Resolved]
